FAERS Safety Report 13432965 (Version 1)
Quarter: 2017Q2

REPORT INFORMATION
  Report Type: Spontaneous
  Country: US (occurrence: US)
  Receive Date: 20170412
  Receipt Date: 20170412
  Transmission Date: 20170830
  Serious: No
  Sender: FDA-Public Use
  Company Number: US-NOVOPROD-530948

PATIENT
  Age: 28 Year
  Sex: Female

DRUGS (2)
  1. SAXENDA [Suspect]
     Active Substance: LIRAGLUTIDE
     Indication: HORMONE LEVEL ABNORMAL
     Dosage: 0.6 MG, QD
     Route: 058
     Dates: start: 20170203
  2. SAXENDA [Suspect]
     Active Substance: LIRAGLUTIDE
     Indication: OVERWEIGHT
     Dosage: 3.0 MG, SINGLE
     Route: 058
     Dates: start: 20170201, end: 20170201

REACTIONS (2)
  - Drug dose titration not performed [Recovered/Resolved]
  - Vomiting [Recovered/Resolved]

NARRATIVE: CASE EVENT DATE: 20170201
